FAERS Safety Report 5661592-8 (Version None)
Quarter: 2008Q1

REPORT INFORMATION
  Report Type: 
  Country: None (occurrence: None)
  Receive Date: 20080312
  Receipt Date: 20080307
  Transmission Date: 20080703
  Serious: Yes (Death)
  Sender: FDA-Public Use
  Company Number: RU-AVENTIS-200812126GDDC

PATIENT
  Age: 79 Year
  Sex: Female

DRUGS (6)
  1. ARAVA [Suspect]
     Indication: RHEUMATOID ARTHRITIS
     Route: 048
     Dates: start: 20040304, end: 20040306
  2. ARAVA [Suspect]
     Route: 048
     Dates: start: 20040307
  3. NIMESULIDE [Concomitant]
     Indication: RHEUMATOID ARTHRITIS
     Route: 048
     Dates: start: 20050101
  4. EGILOK [Concomitant]
     Dosage: DOSE: 1/2 TABLET
     Route: 048
     Dates: start: 20050101
  5. DIROTON [Concomitant]
     Route: 048
     Dates: start: 20050101
  6. MONOMAK [Concomitant]
     Route: 048
     Dates: start: 20050101

REACTIONS (1)
  - MYOCARDIAL RUPTURE [None]
